FAERS Safety Report 9672812 (Version 3)
Quarter: 2014Q2

REPORT INFORMATION
  Report Type: Spontaneous
  Country: US (occurrence: US)
  Receive Date: 20131106
  Receipt Date: 20140422
  Transmission Date: 20141212
  Serious: Yes (Other)
  Sender: FDA-Public Use
  Company Number: US-AMGEN-USASP2013068896

PATIENT
  Age: 72 Year
  Sex: Female

DRUGS (3)
  1. ENBREL [Suspect]
     Indication: RHEUMATOID ARTHRITIS
     Dosage: 50 MG, QWK
     Route: 065
     Dates: start: 20130318
  2. ENBREL [Suspect]
     Dosage: UNK
     Route: 065
  3. LEFLUNOMIDE [Concomitant]
     Dosage: 20 MG, QD

REACTIONS (9)
  - Pulmonary fibrosis [Not Recovered/Not Resolved]
  - Deafness [Not Recovered/Not Resolved]
  - Skin cancer [Unknown]
  - Oropharyngeal pain [Not Recovered/Not Resolved]
  - Gastrooesophageal reflux disease [Not Recovered/Not Resolved]
  - Aphonia [Not Recovered/Not Resolved]
  - Rheumatoid lung [Not Recovered/Not Resolved]
  - Arthritis [Not Recovered/Not Resolved]
  - General symptom [Not Recovered/Not Resolved]
